FAERS Safety Report 23732068 (Version 1)
Quarter: 2024Q2

REPORT INFORMATION
  Report Type: Spontaneous
  Country: US (occurrence: None)
  Receive Date: 20240411
  Receipt Date: 20240411
  Transmission Date: 20240716
  Serious: No
  Sender: FDA-Public Use
  Company Number: None

PATIENT
  Age: 73 Year
  Sex: Male
  Weight: 101.7 kg

DRUGS (1)
  1. DARATUMUMAB [Suspect]
     Active Substance: DARATUMUMAB
     Dates: end: 20240202

REACTIONS (9)
  - Dyspnoea [None]
  - Weight increased [None]
  - Tachypnoea [None]
  - Rales [None]
  - Oedema peripheral [None]
  - Pleural effusion [None]
  - Atelectasis [None]
  - Blood creatinine increased [None]
  - Haemoglobin decreased [None]

NARRATIVE: CASE EVENT DATE: 20240214
